FAERS Safety Report 6517235-4 (Version None)
Quarter: 2009Q4

REPORT INFORMATION
  Report Type: 
  Country: None (occurrence: None)
  Receive Date: 20091217
  Receipt Date: 20090921
  Transmission Date: 20100525
  Serious: Yes (Other)
  Sender: FDA-Public Use
  Company Number: 658307

PATIENT
  Age: 15 Year
  Sex: Female
  Weight: 59 kg

DRUGS (3)
  1. TAMIFLU [Suspect]
     Indication: INFLUENZA
     Dosage: 75 MG 2 PER DAY ORAL
     Route: 048
     Dates: start: 20090918, end: 20090920
  2. SYNTHROID [Concomitant]
  3. TYLENOL [Concomitant]

REACTIONS (1)
  - ERYTHEMA MULTIFORME [None]
